FAERS Safety Report 25539257 (Version 1)
Quarter: 2025Q3

REPORT INFORMATION
  Report Type: Spontaneous
  Country: EU (occurrence: EU)
  Receive Date: 20250710
  Receipt Date: 20250710
  Transmission Date: 20251020
  Serious: Yes (Other)
  Sender: SANOFI AVENTIS
  Company Number: None

PATIENT
  Age: 64 Year
  Sex: Female

DRUGS (14)
  1. RIFAMPIN [Suspect]
     Active Substance: RIFAMPIN
     Indication: Pneumonia
     Dosage: 30 ML, QD
     Route: 048
     Dates: start: 20250502, end: 20250611
  2. INSULIN NOS [Concomitant]
     Active Substance: INSULIN NOS
  3. ESCITALOPRAM [Concomitant]
     Active Substance: ESCITALOPRAM OXALATE
  4. TAMSULOSIN HYDROCHLORIDE [Concomitant]
     Active Substance: TAMSULOSIN HYDROCHLORIDE
  5. TROSPIUM CHLORIDE [Concomitant]
     Active Substance: TROSPIUM CHLORIDE
  6. KARDEGIC [Concomitant]
     Active Substance: ASPIRIN DL-LYSINE
  7. ALFACALCIDOL [Concomitant]
     Active Substance: ALFACALCIDOL
  8. IRBESARTAN [Concomitant]
     Active Substance: IRBESARTAN
  9. PRAVASTATIN SODIUM [Concomitant]
     Active Substance: PRAVASTATIN SODIUM
  10. SERETIDE [Concomitant]
     Active Substance: FLUTICASONE PROPIONATE\SALMETEROL XINAFOATE
  11. ESOMEPRAZOLE [Concomitant]
     Active Substance: ESOMEPRAZOLE
  12. ZOPICLONE [Concomitant]
     Active Substance: ZOPICLONE
  13. DESLORATADINE [Concomitant]
     Active Substance: DESLORATADINE
  14. METOPROLOL FUMARATE [Concomitant]
     Active Substance: METOPROLOL FUMARATE

REACTIONS (1)
  - Suicide attempt [Recovering/Resolving]

NARRATIVE: CASE EVENT DATE: 20250601
